FAERS Safety Report 8166201-4 (Version None)
Quarter: 2012Q1

REPORT INFORMATION
  Report Type: 
  Country: None (occurrence: None)
  Receive Date: 20120227
  Receipt Date: 20110519
  Transmission Date: 20120608
  Serious: No
  Sender: FDA-Public Use
  Company Number: US-MYLANLABS-2011S1009061

PATIENT
  Age: 14 Year
  Sex: Male
  Weight: 74.84 kg

DRUGS (3)
  1. PRILOSEC [Concomitant]
  2. CLONIDINE [Concomitant]
  3. AMNESTEEM [Suspect]
     Indication: ACNE CYSTIC
     Route: 048
     Dates: start: 20110330, end: 20110414

REACTIONS (4)
  - ABDOMINAL DISCOMFORT [None]
  - NAUSEA [None]
  - DIARRHOEA [None]
  - CHAPPED LIPS [None]
